FAERS Safety Report 8854265 (Version 1)
Quarter: 2012Q4

REPORT INFORMATION
  Report Type: Spontaneous
  Country: US (occurrence: None)
  Receive Date: 20121022
  Receipt Date: 20121022
  Transmission Date: 20130627
  Serious: No
  Sender: FDA-Public Use
  Company Number: None

PATIENT
  Age: 68 Year
  Sex: Male
  Weight: 94.1 kg

DRUGS (1)
  1. PROTAMINE SULFATE [Suspect]
     Dates: start: 20120727, end: 20120727

REACTIONS (2)
  - Hypotension [None]
  - Cardiac arrest [None]
